FAERS Safety Report 5300423-2 (Version None)
Quarter: 2007Q2

REPORT INFORMATION
  Report Type: 
  Country: None (occurrence: None)
  Receive Date: 20070411
  Receipt Date: 20070326
  Transmission Date: 20071010
  Serious: Yes (Other)
  Sender: FDA-Public Use
  Company Number: 2007VX000980

PATIENT
  Age: 64 Year
  Sex: Male

DRUGS (2)
  1. PERMAX [Suspect]
     Indication: PARKINSON'S DISEASE
     Dosage: SEE IMAGE
     Route: 048
     Dates: start: 20070201, end: 20070311
  2. PERMAX [Suspect]
     Indication: PARKINSON'S DISEASE
     Dosage: SEE IMAGE
     Route: 048
     Dates: start: 20070312

REACTIONS (2)
  - BRADYCARDIA [None]
  - CONDITION AGGRAVATED [None]
